FAERS Safety Report 10952629 (Version 1)
Quarter: 2015Q1

REPORT INFORMATION
  Report Type: Spontaneous
  Country: US (occurrence: None)
  Receive Date: 20150324
  Receipt Date: 20150324
  Transmission Date: 20150721
  Serious: Yes (Disabling, Other)
  Sender: FDA-Public Use
  Company Number: None

PATIENT
  Age: 58 Year
  Sex: Male
  Weight: 175 kg

DRUGS (1)
  1. ROSUVASTATIN CA [Suspect]
     Active Substance: ROSUVASTATIN CALCIUM
     Indication: BLOOD CHOLESTEROL INCREASED
     Dosage: ONE-HALF TAB
     Route: 048

REACTIONS (5)
  - Muscle spasms [None]
  - Myalgia [None]
  - Asthenia [None]
  - Arthralgia [None]
  - Sleep disorder due to general medical condition, insomnia type [None]
